FAERS Safety Report 12697023 (Version 1)
Quarter: 2016Q3

REPORT INFORMATION
  Report Type: Spontaneous
  Country: US (occurrence: None)
  Receive Date: 20160829
  Receipt Date: 20160829
  Transmission Date: 20161109
  Serious: Yes (Disabling, Other)
  Sender: FDA-Public Use
  Company Number: None

PATIENT
  Age: 38 Year
  Sex: Female
  Weight: 74.84 kg

DRUGS (2)
  1. PREDNISONE, 10 MG WEST-WARD [Suspect]
     Active Substance: PREDNISONE
     Indication: RASH
     Dosage: 50 TABLET(S) ONCE A DAY TAKEN BY MOUTH
     Route: 048
     Dates: start: 20150801, end: 20151216
  2. PREDNISONE, 10 MG WEST-WARD [Suspect]
     Active Substance: PREDNISONE
     Indication: ECZEMA
     Dosage: 50 TABLET(S) ONCE A DAY TAKEN BY MOUTH
     Route: 048
     Dates: start: 20150801, end: 20151216

REACTIONS (9)
  - Pruritus [None]
  - Secretion discharge [None]
  - Loss of employment [None]
  - Burning sensation [None]
  - Blister [None]
  - Rash [None]
  - Eye swelling [None]
  - Impaired work ability [None]
  - Eczema [None]

NARRATIVE: CASE EVENT DATE: 20150801
